FAERS Safety Report 7271743-X (Version None)
Quarter: 2011Q1

REPORT INFORMATION
  Report Type: 
  Country: None (occurrence: None)
  Receive Date: 20110203
  Receipt Date: 20110125
  Transmission Date: 20110831
  Serious: Yes (Death, Hospitalization)
  Sender: FDA-Public Use
  Company Number: US-CELGENEUS-163-21880-10121868

PATIENT
  Sex: Female

DRUGS (15)
  1. AREDIA [Suspect]
  2. AREDIA [Suspect]
     Indication: MULTIPLE MYELOMA
     Route: 051
     Dates: start: 20100501
  3. AMLODIPINE [Concomitant]
     Route: 065
  4. METOPROLOL TARTRATE [Concomitant]
     Route: 065
  5. REVLIMID [Suspect]
     Indication: MULTIPLE MYELOMA
     Route: 048
     Dates: start: 20100501
  6. DEXAMETHASONE [Suspect]
     Indication: MULTIPLE MYELOMA
     Route: 065
  7. HYDROCHLOROTHIAZIDE [Concomitant]
     Route: 065
  8. NEXIUM [Concomitant]
     Route: 065
  9. ADVIL [Concomitant]
     Indication: PAIN
     Route: 065
  10. ASPIRIN [Concomitant]
     Route: 065
  11. ARMOR THYROID [Concomitant]
     Route: 065
  12. DULCOLAX [Concomitant]
     Route: 065
  13. TRANSFUSION [Concomitant]
     Route: 051
     Dates: start: 20100601, end: 20100601
  14. CALCIUM [Concomitant]
     Route: 065
  15. PROCRIT [Concomitant]
     Dosage: 20000 UNITS
     Route: 058
     Dates: start: 20100501

REACTIONS (5)
  - RENAL FAILURE [None]
  - URINARY TRACT INFECTION [None]
  - PNEUMONIA [None]
  - FALL [None]
  - DEHYDRATION [None]
